FAERS Safety Report 19748869 (Version 1)
Quarter: 2021Q3

REPORT INFORMATION
  Report Type: Spontaneous
  Country: US (occurrence: US)
  Receive Date: 20210826
  Receipt Date: 20210826
  Transmission Date: 20211014
  Serious: Yes (Other)
  Sender: FDA-Public Use
  Company Number: US-GLAXOSMITHKLINE-US2021178438

PATIENT
  Sex: Female

DRUGS (1)
  1. BENLYSTA [Suspect]
     Active Substance: BELIMUMAB
     Indication: SYSTEMIC LUPUS ERYTHEMATOSUS
     Dosage: UNK
     Route: 042
     Dates: start: 2013

REACTIONS (6)
  - Nephrolithiasis [Unknown]
  - Cystitis [Unknown]
  - Fatigue [Unknown]
  - Pyrexia [Unknown]
  - Bedridden [Unknown]
  - Migraine [Recovered/Resolved]
